FAERS Safety Report 24615831 (Version 3)
Quarter: 2025Q3

REPORT INFORMATION
  Report Type: Spontaneous
  Country: US (occurrence: US)
  Receive Date: 20241113
  Receipt Date: 20250905
  Transmission Date: 20251020
  Serious: Yes (Other)
  Sender: MERCK SHARP & DOHME LLC
  Company Number: US-009507513-2411USA002319

PATIENT
  Sex: Male

DRUGS (4)
  1. WELIREG [Suspect]
     Active Substance: BELZUTIFAN
     Indication: Renal cell carcinoma
     Dosage: 40MG/ TWICE DAILY
     Route: 048
     Dates: start: 202411
  2. WELIREG [Suspect]
     Active Substance: BELZUTIFAN
     Indication: Renal cell carcinoma
     Dosage: DOSE DESCRIPTION : 120 MILLIGRAM, QD?DAILY DOSE : 120 MILLIGRAM
     Route: 048
     Dates: start: 20241010, end: 2024
  3. WELIREG [Suspect]
     Active Substance: BELZUTIFAN
     Indication: Renal cell carcinoma
     Dosage: DOSE DESCRIPTION : 80 MILLIGRAM, QD?DAILY DOSE : 80 MILLIGRAM
     Route: 048
     Dates: start: 2024, end: 2024
  4. WELIREG [Suspect]
     Active Substance: BELZUTIFAN
     Indication: Renal cell carcinoma
     Dosage: DOSE DESCRIPTION : UNK, EVERY FOURTH DAY (Q4D)
     Route: 048
     Dates: start: 2024

REACTIONS (6)
  - Tumour flare [Unknown]
  - Rash pruritic [Recovering/Resolving]
  - Hypoxia [Not Recovered/Not Resolved]
  - Bronchospasm [Not Recovered/Not Resolved]
  - Inappropriate schedule of product administration [Unknown]
  - Inappropriate schedule of product administration [Unknown]

NARRATIVE: CASE EVENT DATE: 20240101
